FAERS Safety Report 8328511-7 (Version None)
Quarter: 2012Q2

REPORT INFORMATION
  Report Type: 
  Country: None (occurrence: None)
  Receive Date: 20120430
  Receipt Date: 20120426
  Transmission Date: 20120825
  Serious: Yes (Other)
  Sender: FDA-Public Use
  Company Number: DEP_00618_2012

PATIENT
  Weight: 77.1115 kg

DRUGS (9)
  1. GRALISE [Suspect]
     Indication: HERPES ZOSTER
     Dosage: STARTER PACK, AT DINNER ORAL, 2 DF, AT DINNER  ORAL, 1 DF, 1 PILL, AT DINNER ORAL
     Route: 048
     Dates: start: 20120330, end: 20120408
  2. GRALISE [Suspect]
     Indication: HERPES ZOSTER
     Dosage: STARTER PACK, AT DINNER ORAL, 2 DF, AT DINNER  ORAL, 1 DF, 1 PILL, AT DINNER ORAL
     Route: 048
     Dates: start: 20120409, end: 20120409
  3. GRALISE [Suspect]
     Indication: HERPES ZOSTER
     Dosage: STARTER PACK, AT DINNER ORAL, 2 DF, AT DINNER  ORAL, 1 DF, 1 PILL, AT DINNER ORAL
     Route: 048
     Dates: start: 20120408, end: 20120409
  4. GRALISE [Suspect]
  5. OPANA [Concomitant]
  6. GRALISE [Suspect]
  7. LEVACAINE [Concomitant]
  8. FENTANYL [Concomitant]
  9. LYRICA [Concomitant]

REACTIONS (5)
  - SUICIDAL IDEATION [None]
  - ORAL HERPES [None]
  - ARTHRALGIA [None]
  - IRRITABILITY [None]
  - NIGHT SWEATS [None]
